FAERS Safety Report 16611012 (Version 1)
Quarter: 2019Q3

REPORT INFORMATION
  Report Type: Spontaneous
  Country: CO (occurrence: CO)
  Receive Date: 20190722
  Receipt Date: 20190722
  Transmission Date: 20191004
  Serious: Yes (Hospitalization)
  Sender: FDA-Public Use
  Company Number: CO-ANIPHARMA-2019-CO-000003

PATIENT
  Age: 71 Year
  Sex: Female

DRUGS (3)
  1. LOSARTAN. [Concomitant]
     Active Substance: LOSARTAN
  2. LEVOTHYROXINE. [Concomitant]
     Active Substance: LEVOTHYROXINE
  3. ANASTROZOLE. [Suspect]
     Active Substance: ANASTROZOLE
     Indication: BREAST CANCER

REACTIONS (2)
  - Subarachnoid haemorrhage [Recovered/Resolved]
  - Reversible cerebral vasoconstriction syndrome [Recovered/Resolved]
